FAERS Safety Report 5950147-3 (Version None)
Quarter: 2008Q4

REPORT INFORMATION
  Report Type: 
  Country: None (occurrence: None)
  Receive Date: 20081112
  Receipt Date: 20080618
  Transmission Date: 20090506
  Serious: No
  Sender: FDA-Public Use
  Company Number: US-BAYER-200819476NA

PATIENT
  Age: 73 Year
  Sex: Female
  Weight: 84 kg

DRUGS (6)
  1. BETAPACE [Suspect]
     Indication: VENTRICULAR FIBRILLATION
     Dosage: UNIT DOSE: 40 MG
     Route: 048
     Dates: start: 20040101
  2. SYNTHROID [Concomitant]
     Indication: DRUG USE FOR UNKNOWN INDICATION
  3. LISINOPRIL [Concomitant]
     Route: 048
  4. BAYER ASA [Concomitant]
     Route: 048
  5. LASIX [Concomitant]
     Route: 048
  6. ZOCOR [Concomitant]

REACTIONS (3)
  - FATIGUE [None]
  - MUSCLE SPASMS [None]
  - THYROID FUNCTION TEST ABNORMAL [None]
